APPROVED DRUG PRODUCT: RIVASTIGMINE TARTRATE
Active Ingredient: RIVASTIGMINE TARTRATE
Strength: EQ 1.5MG BASE
Dosage Form/Route: CAPSULE;ORAL
Application: A207797 | Product #001 | TE Code: AB
Applicant: CHARTWELL RX SCIENCES LLC
Approved: Sep 28, 2017 | RLD: No | RS: No | Type: RX